FAERS Safety Report 19495318 (Version 2)
Quarter: 2021Q3

REPORT INFORMATION
  Report Type: Report from Study
  Country: None (occurrence: US)
  Receive Date: 20210706
  Receipt Date: 20210731
  Transmission Date: 20211014
  Serious: Yes (Other)
  Sender: FDA-Public Use
  Company Number: US-ABBVIE-21K-163-3971212-00

PATIENT
  Sex: Female

DRUGS (1)
  1. HUMIRA [Suspect]
     Active Substance: ADALIMUMAB
     Indication: COLITIS ULCERATIVE
     Dosage: CF
     Route: 058

REACTIONS (11)
  - Liver injury [Unknown]
  - Carcinoid tumour [Recovered/Resolved]
  - Thyroid disorder [Recovering/Resolving]
  - Hepatic cirrhosis [Unknown]
  - Diarrhoea [Unknown]
  - Rectal haemorrhage [Unknown]
  - Colon cancer [Unknown]
  - Unevaluable event [Unknown]
  - Drug ineffective [Unknown]
  - Product dose omission in error [Unknown]
  - Scar [Recovering/Resolving]

NARRATIVE: CASE EVENT DATE: 2006
